FAERS Safety Report 4375489-7 (Version None)
Quarter: 2004Q2

REPORT INFORMATION
  Report Type: 
  Country: None (occurrence: None)
  Receive Date: 20040607
  Receipt Date: 20040429
  Transmission Date: 20050107
  Serious: Yes (Hospitalization)
  Sender: FDA-Public Use
  Company Number: KII-2004-0010763

PATIENT
  Age: 3 Year
  Sex: Male
  Weight: 15.8 kg

DRUGS (1)
  1. OXYCONTIN [Suspect]
     Indication: DRUG USE FOR UNKNOWN INDICATION
     Dosage: 40 MG, ORAL
     Route: 048
     Dates: start: 20040429

REACTIONS (1)
  - ACCIDENTAL EXPOSURE [None]
